FAERS Safety Report 20710156 (Version 2)
Quarter: 2022Q2

REPORT INFORMATION
  Report Type: Spontaneous
  Country: US (occurrence: US)
  Receive Date: 20220414
  Receipt Date: 20220428
  Transmission Date: 20220720
  Serious: Yes (Other)
  Sender: FDA-Public Use
  Company Number: US-BAYER-2022A050372

PATIENT
  Age: 50 Year
  Sex: Male

DRUGS (1)
  1. JIVI [Suspect]
     Active Substance: DAMOCTOCOG ALFA PEGOL
     Dosage: 6000 IU
     Route: 042

REACTIONS (5)
  - Epistaxis [None]
  - Epistaxis [None]
  - Epistaxis [None]
  - Epistaxis [Recovered/Resolved]
  - Nasal operation [None]

NARRATIVE: CASE EVENT DATE: 20220310
